FAERS Safety Report 9807886 (Version 2)
Quarter: 2014Q1

REPORT INFORMATION
  Report Type: Report from Study
  Country: CA (occurrence: CA)
  Receive Date: 20140110
  Receipt Date: 20140306
  Transmission Date: 20141002
  Serious: Yes (Other)
  Sender: FDA-Public Use
  Company Number: CA-JNJFOC-20140102125

PATIENT
  Age: 50 Year
  Sex: Female
  Weight: 80 kg

DRUGS (2)
  1. REMICADE [Suspect]
     Indication: CROHN^S DISEASE
     Route: 042
     Dates: start: 20091115
  2. COVERSYL [Suspect]
     Indication: BLOOD PRESSURE
     Route: 065
     Dates: start: 201312, end: 2014

REACTIONS (5)
  - Blood pressure increased [Not Recovered/Not Resolved]
  - Syncope [Not Recovered/Not Resolved]
  - Rectal discharge [Not Recovered/Not Resolved]
  - Cough [Not Recovered/Not Resolved]
  - Proctalgia [Not Recovered/Not Resolved]
